FAERS Safety Report 17514754 (Version 1)
Quarter: 2020Q1

REPORT INFORMATION
  Report Type: Spontaneous
  Country: US (occurrence: US)
  Receive Date: 20200309
  Receipt Date: 20200309
  Transmission Date: 20200409
  Serious: Yes (Other)
  Sender: FDA-Public Use
  Company Number: US-ALLERGAN-2010480US

PATIENT
  Sex: Male

DRUGS (4)
  1. METHASTERONE. [Suspect]
     Active Substance: METHASTERONE
     Indication: MUSCLE BUILDING THERAPY
  2. TRENBOLONE [Suspect]
     Active Substance: TRENBOLONE
     Indication: MUSCLE BUILDING THERAPY
  3. OXANDROLONE. [Suspect]
     Active Substance: OXANDROLONE
     Indication: MUSCLE BUILDING THERAPY
     Route: 065
  4. TESTOSTERONE UNK [Suspect]
     Active Substance: TESTOSTERONE
     Indication: MUSCLE BUILDING THERAPY
     Route: 065

REACTIONS (4)
  - Drug abuse [Unknown]
  - Off label use [Unknown]
  - Cholestasis [Recovered/Resolved]
  - Hepatomegaly [Recovered/Resolved]
